FAERS Safety Report 8965364 (Version 2)
Quarter: 2013Q2

REPORT INFORMATION
  Report Type: Spontaneous
  Country: FR (occurrence: FR)
  Receive Date: 20121213
  Receipt Date: 20130404
  Transmission Date: 20140414
  Serious: Yes (Hospitalization)
  Sender: FDA-Public Use
  Company Number: FR-009507513-1212FRA001654

PATIENT
  Age: 71 Year
  Sex: Female
  Weight: 60 kg

DRUGS (7)
  1. VICTRELIS [Suspect]
     Indication: HEPATITIS C
     Dosage: 800 MG, TID
     Route: 048
     Dates: start: 20120312, end: 20120907
  2. PEGASYS [Suspect]
     Indication: HEPATITIS C
     Dosage: 180 MICROGRAM, QW
     Route: 058
     Dates: start: 20120213, end: 20120907
  3. PEGASYS [Suspect]
     Dosage: 180 MICROGRAM, QW
     Dates: start: 20120910
  4. COPEGUS [Suspect]
     Indication: HEPATITIS C
     Dosage: 1 G, QD
     Route: 048
     Dates: start: 20120213, end: 20120907
  5. COPEGUS [Suspect]
     Dosage: 1 G, QD
     Dates: start: 20120910
  6. INEXIUM [Concomitant]
     Indication: GASTROOESOPHAGEAL REFLUX DISEASE
     Dosage: 20 MG, QD
     Dates: start: 20120315
  7. PRIMPERAN [Concomitant]
     Indication: NAUSEA
     Dosage: 1 DF, TID
     Dates: start: 20120315

REACTIONS (1)
  - Femoral hernia, obstructive [Recovered/Resolved]
